FAERS Safety Report 4779433-X (Version None)
Quarter: 2005Q3

REPORT INFORMATION
  Report Type: 
  Country: None (occurrence: None)
  Receive Date: 20050923
  Receipt Date: 20050812
  Transmission Date: 20060218
  Serious: Yes (Hospitalization)
  Sender: FDA-Public Use
  Company Number: USA0508105327

PATIENT
  Sex: Female

DRUGS (3)
  1. FORTEO [Suspect]
     Dates: start: 20050301, end: 20050101
  2. BLOOD PRESSURE MEDICATIONS [Concomitant]
  3. CALCIUM GLUCONATE [Concomitant]

REACTIONS (1)
  - DIARRHOEA [None]
